FAERS Safety Report 8824584 (Version 1)
Quarter: 2012Q4

REPORT INFORMATION
  Report Type: 
  Country: US (occurrence: US)
  Receive Date: 20121004
  Receipt Date: 20121004
  Transmission Date: 20130627
  Serious: Yes (Life-Threatening, Other)
  Sender: FDA-Public Use
  Company Number: US-JNJFOC-20120911398

PATIENT
  Age: 14 Year
  Sex: Female

DRUGS (4)
  1. REMICADE [Suspect]
     Indication: CROHN^S DISEASE
     Dosage: approximately 5th infliximab dose
     Route: 042
  2. REMICADE [Suspect]
     Indication: CROHN^S DISEASE
     Route: 042
  3. BENADRYL [Suspect]
     Indication: PREMEDICATION
     Route: 065
  4. SOLUCORTEF [Concomitant]
     Indication: PREMEDICATION
     Route: 065

REACTIONS (2)
  - Infusion related reaction [Unknown]
  - Hypersensitivity [Unknown]
